FAERS Safety Report 18250001 (Version 2)
Quarter: 2020Q4

REPORT INFORMATION
  Report Type: Spontaneous
  Country: US (occurrence: US)
  Receive Date: 20200909
  Receipt Date: 20201002
  Transmission Date: 20210113
  Serious: Yes (Death, Other)
  Sender: FDA-Public Use
  Company Number: US-GILEAD-2020-0494245

PATIENT
  Age: 70 Year
  Sex: Male
  Weight: 134 kg

DRUGS (4)
  1. PLASMA [Concomitant]
     Active Substance: HUMAN PLASMA
  2. DEXAMETHASONE. [Concomitant]
     Active Substance: DEXAMETHASONE
     Dosage: UNK
     Dates: start: 20200805, end: 20200814
  3. REMDESIVIR. [Suspect]
     Active Substance: REMDESIVIR
     Indication: COVID-19
     Dosage: UNK
     Route: 065
     Dates: start: 20200810
  4. TOCILIZUMAB. [Concomitant]
     Active Substance: TOCILIZUMAB
     Dosage: UNK
     Dates: start: 20200810

REACTIONS (13)
  - Pneumonia bacterial [Not Recovered/Not Resolved]
  - Endotracheal intubation complication [Recovered/Resolved]
  - Achromobacter infection [Not Recovered/Not Resolved]
  - Hypernatraemia [Unknown]
  - Disease progression [Not Recovered/Not Resolved]
  - Supraventricular tachycardia [Unknown]
  - Acute respiratory distress syndrome [Not Recovered/Not Resolved]
  - Acute kidney injury [Unknown]
  - Fluid overload [Unknown]
  - Cor pulmonale [Unknown]
  - Pulmonary oedema [Unknown]
  - Death [Fatal]
  - Sepsis [Not Recovered/Not Resolved]

NARRATIVE: CASE EVENT DATE: 20200823
